FAERS Safety Report 21007348 (Version 4)
Quarter: 2022Q3

REPORT INFORMATION
  Report Type: Other
  Country: US (occurrence: None)
  Receive Date: 20220626
  Receipt Date: 20220705
  Transmission Date: 20221027
  Serious: Yes (Death)
  Sender: FDA-Public Use
  Company Number: US-ROCHE-3124946

PATIENT
  Age: 84 Year
  Sex: Male

DRUGS (20)
  1. XOLAIR [Suspect]
     Active Substance: OMALIZUMAB
     Indication: Status asthmaticus
     Dosage: INJECT 300MG SUBCUTANEOUSLY EVERY 2 WEEK(S)
     Route: 058
     Dates: start: 20210129, end: 20220610
  2. XOLAIR [Suspect]
     Active Substance: OMALIZUMAB
  3. XOLAIR [Suspect]
     Active Substance: OMALIZUMAB
  4. XOLAIR [Suspect]
     Active Substance: OMALIZUMAB
     Indication: Asthma
  5. XOLAIR [Suspect]
     Active Substance: OMALIZUMAB
  6. XOLAIR [Suspect]
     Active Substance: OMALIZUMAB
  7. OMEPRAZOLE [Concomitant]
     Active Substance: OMEPRAZOLE
  8. ZYRTEC [Concomitant]
     Active Substance: CETIRIZINE HYDROCHLORIDE
  9. VENTOLIN [Concomitant]
     Active Substance: ALBUTEROL SULFATE
  10. METFORMIN [Concomitant]
     Active Substance: METFORMIN HYDROCHLORIDE
  11. INSULIN NOS [Concomitant]
     Active Substance: INSULIN NOS
  12. PRAVASTATIN [Concomitant]
     Active Substance: PRAVASTATIN
  13. AZELASTINE [Concomitant]
     Active Substance: AZELASTINE
  14. OXYGEN [Concomitant]
     Active Substance: OXYGEN
  15. DUONEB [Concomitant]
     Active Substance: ALBUTEROL SULFATE\IPRATROPIUM BROMIDE
  16. MONTELUKAST [Concomitant]
     Active Substance: MONTELUKAST SODIUM
  17. POTASSIUM [Concomitant]
     Active Substance: POTASSIUM
  18. VALSARTAN [Concomitant]
     Active Substance: VALSARTAN
  19. CARVEDILOL [Concomitant]
     Active Substance: CARVEDILOL
  20. HYDROCHLOROTHIAZIDE [Concomitant]
     Active Substance: HYDROCHLOROTHIAZIDE

REACTIONS (2)
  - Ventricular tachycardia [Fatal]
  - Cardio-respiratory arrest [Fatal]

NARRATIVE: CASE EVENT DATE: 20220618
